FAERS Safety Report 6663019-6 (Version None)
Quarter: 2010Q2

REPORT INFORMATION
  Report Type: 
  Country: None (occurrence: None)
  Receive Date: 20100401
  Receipt Date: 20100324
  Transmission Date: 20101027
  Serious: Yes (Other)
  Sender: FDA-Public Use
  Company Number: DK-JNJFOC-20100307471

PATIENT
  Age: 20 Year
  Sex: Male

DRUGS (2)
  1. REMICADE [Suspect]
     Indication: CROHN'S DISEASE
     Route: 042
  2. IMUREL [Suspect]
     Indication: CROHN'S DISEASE

REACTIONS (3)
  - ANAEMIA [None]
  - PAROXYSMAL NOCTURNAL HAEMOGLOBINURIA [None]
  - PLATELET COUNT DECREASED [None]
